FAERS Safety Report 7709659-4 (Version None)
Quarter: 2011Q3

REPORT INFORMATION
  Report Type: 
  Country: None (occurrence: None)
  Receive Date: 20110819
  Receipt Date: 20110810
  Transmission Date: 20111222
  Serious: Yes (Other)
  Sender: FDA-Public Use
  Company Number: 1007541

PATIENT
  Age: 74 Year
  Sex: Female

DRUGS (1)
  1. CARBOPLATIN [Suspect]
     Indication: PRODUCT USED FOR UNKNOWN INDICATION
     Dosage: 645.0MG, INTRAVENOUS (NOT OTHERWISE SPECIFIED)

REACTIONS (3)
  - CHEST DISCOMFORT [None]
  - NAUSEA [None]
  - FLUSHING [None]
